FAERS Safety Report 13073784 (Version 2)
Quarter: 2017Q1

REPORT INFORMATION
  Report Type: Spontaneous
  Country: GB (occurrence: GB)
  Receive Date: 20161229
  Receipt Date: 20170127
  Transmission Date: 20170428
  Serious: Yes (Disabling, Congenital Anomaly)
  Sender: FDA-Public Use
  Company Number: GB-PFIZER INC-2016602030

PATIENT
  Sex: Male

DRUGS (4)
  1. ASPIRIN /00002701/ [Suspect]
     Active Substance: ASPIRIN
     Dosage: UNK
     Route: 064
  2. HUMIRA [Suspect]
     Active Substance: ADALIMUMAB
     Route: 064
  3. FRAGMIN [Suspect]
     Active Substance: DALTEPARIN SODIUM
     Dosage: UNK
     Route: 064
  4. PROGESTERONE. [Suspect]
     Active Substance: PROGESTERONE
     Dosage: UNK
     Route: 064

REACTIONS (3)
  - Foetal chromosome abnormality [Unknown]
  - Maternal exposure timing unspecified [Unknown]
  - Congenital anomaly [Unknown]
